FAERS Safety Report 20336860 (Version 6)
Quarter: 2023Q4

REPORT INFORMATION
  Report Type: Report from Study
  Country: DK (occurrence: DK)
  Receive Date: 20220114
  Receipt Date: 20231107
  Transmission Date: 20240110
  Serious: Yes (Hospitalization)
  Sender: FDA-Public Use
  Company Number: DK-Accord-247280

PATIENT
  Age: 75 Year
  Sex: Male
  Weight: 140 kg

DRUGS (20)
  1. OXALIPLATIN [Suspect]
     Active Substance: OXALIPLATIN
     Indication: Diffuse large B-cell lymphoma refractory
     Dosage: 100 MILLIGRAM/SQ. METER (1Q2W)
     Route: 042
     Dates: start: 20211123, end: 20211123
  2. OXALIPLATIN [Suspect]
     Active Substance: OXALIPLATIN
     Dosage: 100 MILLIGRAM/SQ. METER (1Q2W)
     Route: 042
     Dates: start: 20211214
  3. GEMCITABINE [Suspect]
     Active Substance: GEMCITABINE
     Indication: Diffuse large B-cell lymphoma refractory
     Dosage: 1000 MILLIGRAM/SQ. METER (1Q2W)
     Route: 042
     Dates: start: 20211123, end: 20211123
  4. GEMCITABINE [Suspect]
     Active Substance: GEMCITABINE
     Dosage: 1000 MILLIGRAM/SQ. METER (1Q2W)
     Route: 042
     Dates: start: 20211214
  5. RITUXIMAB [Suspect]
     Active Substance: RITUXIMAB
     Indication: Diffuse large B-cell lymphoma refractory
     Dosage: 375 MILLIGRAM/SQ. METER, 1Q2W
     Route: 042
     Dates: start: 20211122, end: 20211122
  6. RITUXIMAB [Suspect]
     Active Substance: RITUXIMAB
     Dosage: 375 MILLIGRAM/SQ. METER, 1Q2W
     Route: 042
     Dates: start: 20211206
  7. ALLOPURINOL [Concomitant]
     Active Substance: ALLOPURINOL
     Dosage: UNK
     Route: 065
     Dates: start: 20211013, end: 20211128
  8. ACETAMINOPHEN [Concomitant]
     Active Substance: ACETAMINOPHEN
     Dosage: 1 UNK
     Route: 065
     Dates: start: 20170118
  9. ACETAMINOPHEN [Concomitant]
     Active Substance: ACETAMINOPHEN
     Dosage: UNK
     Route: 065
     Dates: start: 20210823
  10. Furix [Concomitant]
     Dosage: UNK
     Route: 065
     Dates: start: 20211119, end: 20211119
  11. PANTOPRAZOLE SODIUM [Concomitant]
     Active Substance: PANTOPRAZOLE SODIUM
     Dosage: UNK
     Route: 065
     Dates: start: 20211013
  12. METOCLOPRAMIDE [Concomitant]
     Active Substance: METOCLOPRAMIDE
     Dosage: UNK
     Route: 065
     Dates: start: 20211122, end: 20211124
  13. Morfin [Concomitant]
     Dosage: UNK
     Route: 065
     Dates: start: 20211109
  14. BIOCLAVID [Concomitant]
     Active Substance: AMOXICILLIN\CLAVULANIC ACID
     Dosage: UNK
     Route: 065
     Dates: start: 20211119, end: 20211124
  15. GABAPENTIN [Concomitant]
     Active Substance: GABAPENTIN
     Dosage: UNK
     Route: 065
     Dates: start: 20210826
  16. ATORVASTATIN [Concomitant]
     Active Substance: ATORVASTATIN
     Dosage: UNK
     Route: 065
     Dates: start: 20210630
  17. POTASSIUM CHLORIDE [Concomitant]
     Active Substance: POTASSIUM CHLORIDE
     Dosage: UNK (START: 28-DEC-2021)
     Route: 065
  18. MAGNESIUM HYDROXIDE [Concomitant]
     Active Substance: MAGNESIUM HYDROXIDE
     Dosage: UNK (START DATE: 28-DEC-2021)
     Route: 065
  19. TRAMADOL [Concomitant]
     Active Substance: TRAMADOL\TRAMADOL HYDROCHLORIDE
     Dosage: UNK
     Route: 065
     Dates: start: 20210823
  20. DALTEPARIN [Concomitant]
     Active Substance: DALTEPARIN
     Dosage: UNK
     Route: 065
     Dates: start: 20211011

REACTIONS (4)
  - Tumour lysis syndrome [Recovered/Resolved]
  - Infusion related reaction [Recovered/Resolved]
  - Nausea [Unknown]
  - Off label use [Unknown]

NARRATIVE: CASE EVENT DATE: 20211122
